FAERS Safety Report 6221229-6 (Version None)
Quarter: 2009Q2

REPORT INFORMATION
  Report Type: 
  Country: None (occurrence: None)
  Receive Date: 20090610
  Receipt Date: 20090604
  Transmission Date: 20091009
  Serious: Yes (Hospitalization)
  Sender: FDA-Public Use
  Company Number: IT-MERCK-0904ITA00026

PATIENT
  Age: 85 Year
  Sex: Female

DRUGS (9)
  1. ZOCOR [Suspect]
     Route: 048
     Dates: start: 20090302, end: 20090315
  2. AMIODARONE HYDROCHLORIDE [Suspect]
     Route: 048
     Dates: start: 20090123, end: 20090318
  3. ATORVASTATIN CALCIUM [Suspect]
     Route: 048
     Dates: start: 20090122, end: 20090130
  4. ATORVASTATIN CALCIUM [Suspect]
     Route: 048
     Dates: start: 20090131, end: 20090301
  5. ZOFENOPRIL CALCIUM [Concomitant]
     Route: 065
     Dates: start: 20090101
  6. FUROSEMIDE SODIUM [Concomitant]
     Route: 065
     Dates: start: 20090101
  7. CANRENOATE POTASSIUM [Concomitant]
     Route: 065
     Dates: start: 20090301
  8. OMEPRAZOLE [Concomitant]
     Route: 065
  9. ALLOPURINOL [Concomitant]
     Route: 065
     Dates: start: 20090101

REACTIONS (3)
  - MOVEMENT DISORDER [None]
  - MUSCULAR WEAKNESS [None]
  - MYALGIA [None]
